FAERS Safety Report 4466193-5 (Version None)
Quarter: 2004Q3

REPORT INFORMATION
  Report Type: 
  Country: None (occurrence: None)
  Receive Date: 20040930
  Receipt Date: 20040923
  Transmission Date: 20050211
  Serious: Yes (Hospitalization)
  Sender: FDA-Public Use
  Company Number: 200410559BNE

PATIENT
  Age: 19 Year
  Sex: Female
  Weight: 70 kg

DRUGS (2)
  1. MOXIFLOXACIN [Suspect]
     Indication: PELVIC INFLAMMATORY DISEASE
     Dosage: 400 MG, TOTAL DAILY, ORAL
     Route: 048
     Dates: start: 20040810, end: 20040821
  2. NORETHINDRONE ACETATE AND ETHINYL ESTRADIOL [Concomitant]

REACTIONS (4)
  - DRUG HYPERSENSITIVITY [None]
  - LYMPHADENOPATHY [None]
  - PYREXIA [None]
  - TACHYCARDIA [None]
